FAERS Safety Report 6714232-0 (Version None)
Quarter: 2010Q2

REPORT INFORMATION
  Report Type: 
  Country: None (occurrence: None)
  Receive Date: 20100506
  Receipt Date: 20100426
  Transmission Date: 20101027
  Serious: Yes (Hospitalization, Other)
  Sender: FDA-Public Use
  Company Number: US-PFIZER INC-2010053191

PATIENT
  Sex: Female
  Weight: 83.9 kg

DRUGS (7)
  1. LYRICA [Suspect]
     Indication: FIBROMYALGIA
     Dosage: 150 MG, 1X/DAY
  2. INDERAL [Concomitant]
     Indication: ANGINA PECTORIS
     Dosage: 20 MG, 3X/DAY
  3. SEROQUEL [Concomitant]
     Dosage: 600 MG, 1X/DAY
  4. KLONOPIN [Concomitant]
     Dosage: 1 MG, 2X/DAY
  5. ZANAFLEX [Concomitant]
     Dosage: UNK, 3X/DAY
  6. DEPAKOTE [Concomitant]
     Dosage: 500 MG, 1X/DAY
  7. CALCIUM WITH VITAMIN D [Concomitant]
     Indication: OSTEOPOROSIS
     Dosage: 500MG/400IU

REACTIONS (18)
  - AGITATION [None]
  - BACK INJURY [None]
  - CARPAL TUNNEL SYNDROME [None]
  - CHEST PAIN [None]
  - DECREASED INTEREST [None]
  - DEPRESSION [None]
  - DRUG INEFFECTIVE [None]
  - FALL [None]
  - INSOMNIA [None]
  - INTENTIONAL DRUG MISUSE [None]
  - LIMB OPERATION [None]
  - LUMBAR SPINAL STENOSIS [None]
  - NECK INJURY [None]
  - PAIN [None]
  - RESTLESS LEGS SYNDROME [None]
  - SUICIDAL IDEATION [None]
  - UPPER LIMB FRACTURE [None]
  - WEIGHT INCREASED [None]
